FAERS Safety Report 6985038-2 (Version None)
Quarter: 2010Q3

REPORT INFORMATION
  Report Type: 
  Country: None (occurrence: None)
  Receive Date: 20100915
  Receipt Date: 20100903
  Transmission Date: 20110219
  Serious: Yes (Other)
  Sender: FDA-Public Use
  Company Number: PHHY2010US31936

PATIENT
  Age: 18 Year
  Sex: Female

DRUGS (5)
  1. LEPONEX [Suspect]
     Indication: SCHIZOAFFECTIVE DISORDER
     Dosage: 250 MG, BID
  2. LORAZEPAM [Suspect]
     Indication: SCHIZOAFFECTIVE DISORDER
     Dosage: 2 MG, QID
  3. ADVAIR DISKUS 100/50 [Concomitant]
     Indication: ASTHMA
  4. TOPIRAMATE [Concomitant]
     Indication: MIGRAINE
  5. CONTRACEPTIVES NOS [Concomitant]
     Route: 048

REACTIONS (5)
  - ACANTHOSIS NIGRICANS [None]
  - BLOOD GLUCOSE INCREASED [None]
  - BODY MASS INDEX INCREASED [None]
  - OBESITY [None]
  - WEIGHT INCREASED [None]
